FAERS Safety Report 20279445 (Version 1)
Quarter: 2022Q1

REPORT INFORMATION
  Report Type: Spontaneous
  Country: US (occurrence: US)
  Receive Date: 20220103
  Receipt Date: 20220103
  Transmission Date: 20220424
  Serious: Yes (Other)
  Sender: FDA-Public Use
  Company Number: US-GLAXOSMITHKLINE-US2021GSK266411

PATIENT
  Sex: Female

DRUGS (4)
  1. RANITIDINE [Suspect]
     Active Substance: RANITIDINE
     Indication: Abdominal pain upper
     Dosage: UNKNOWN AT THIS TIME, QD
     Route: 065
     Dates: start: 200801, end: 202101
  2. RANITIDINE [Suspect]
     Active Substance: RANITIDINE
     Indication: Abdominal pain upper
     Dosage: UNKNOWN AT THIS TIME, QD
     Route: 065
     Dates: start: 200801, end: 202101
  3. ZANTAC [Suspect]
     Active Substance: RANITIDINE HYDROCHLORIDE
     Indication: Abdominal pain upper
     Dosage: 150 MG, QD
     Route: 065
     Dates: start: 200801, end: 202101
  4. RANITIDINE [Suspect]
     Active Substance: RANITIDINE
     Indication: Abdominal pain upper
     Dosage: 150 MG, QD
     Route: 065
     Dates: start: 200801, end: 202101

REACTIONS (1)
  - Breast cancer [Unknown]
